FAERS Safety Report 24762460 (Version 1)
Quarter: 2024Q4

REPORT INFORMATION
  Report Type: Report from Study
  Country: US (occurrence: US)
  Receive Date: 20241221
  Receipt Date: 20241221
  Transmission Date: 20250114
  Serious: Yes (Hospitalization, Other)
  Sender: TAKEDA
  Company Number: US-TAKEDA-2024TUS072154

PATIENT
  Sex: Female
  Weight: 92.51 kg

DRUGS (19)
  1. LANADELUMAB [Suspect]
     Active Substance: LANADELUMAB
     Indication: Immune system disorder
     Dosage: 300 MILLIGRAM, Q2WEEKS
     Dates: start: 20240702
  2. LANADELUMAB [Suspect]
     Active Substance: LANADELUMAB
  3. LANADELUMAB [Suspect]
     Active Substance: LANADELUMAB
  4. EPINEPHRINE [Concomitant]
     Active Substance: EPINEPHRINE
     Dosage: UNK
  5. ZYRTEC [Concomitant]
     Active Substance: CETIRIZINE HYDROCHLORIDE
     Dosage: UNK
  6. OMEPRAZOLE [Concomitant]
     Active Substance: OMEPRAZOLE
     Dosage: UNK
  7. FAMOTIDINE [Concomitant]
     Active Substance: FAMOTIDINE
     Dosage: UNK
  8. CLARITIN [Concomitant]
     Active Substance: LORATADINE
     Dosage: UNK
  9. FUROSEMIDE [Concomitant]
     Active Substance: FUROSEMIDE
     Dosage: UNK
  10. SINGULAIR [Concomitant]
     Active Substance: MONTELUKAST SODIUM
     Dosage: UNK
  11. XOLAIR [Concomitant]
     Active Substance: OMALIZUMAB
     Dosage: UNK
  12. HAEGARDA [Concomitant]
     Active Substance: HUMAN C1-ESTERASE INHIBITOR
     Dosage: UNK
  13. BREO ELLIPTA [Concomitant]
     Active Substance: FLUTICASONE FUROATE\VILANTEROL TRIFENATATE
     Dosage: UNK
  14. GABAPENTIN [Concomitant]
     Active Substance: GABAPENTIN
     Dosage: UNK
  15. ICATIBANT [Concomitant]
     Active Substance: ICATIBANT ACETATE
     Dosage: UNK
  16. LUNESTA [Concomitant]
     Active Substance: ESZOPICLONE
     Dosage: UNK
  17. CYCLOBENZAPRINE HYDROCHLORIDE [Concomitant]
     Active Substance: CYCLOBENZAPRINE HYDROCHLORIDE
     Dosage: UNK
  18. LOSARTAN POTASSIUM [Concomitant]
     Active Substance: LOSARTAN POTASSIUM
     Dosage: UNK
  19. VYVANSE [Concomitant]
     Active Substance: LISDEXAMFETAMINE DIMESYLATE
     Dosage: UNK

REACTIONS (2)
  - Choking [Unknown]
  - Hereditary angioedema [Unknown]
